FAERS Safety Report 12836154 (Version 1)
Quarter: 2016Q4

REPORT INFORMATION
  Report Type: Spontaneous
  Country: ES (occurrence: ES)
  Receive Date: 20161011
  Receipt Date: 20161011
  Transmission Date: 20170207
  Serious: Yes (Hospitalization)
  Sender: FDA-Public Use
  Company Number: ES-NORTHSTAR HEALTHCARE HOLDINGS-ES-2016NSR001855

PATIENT
  Age: 49 Year
  Sex: Male

DRUGS (8)
  1. METAMIZOLE [Suspect]
     Active Substance: METAMIZOLE
     Indication: UMBILICAL HERNIA REPAIR
     Dosage: UNK
  2. METAMIZOLE [Suspect]
     Active Substance: METAMIZOLE
     Dosage: UNK
  3. VALSARTAN. [Suspect]
     Active Substance: VALSARTAN
     Dosage: UNK
  4. PARACETAMOL [Suspect]
     Active Substance: ACETAMINOPHEN
     Indication: UMBILICAL HERNIA REPAIR
     Dosage: UNK
  5. PARACETAMOL [Suspect]
     Active Substance: ACETAMINOPHEN
     Indication: ANALGESIC THERAPY
     Dosage: UNK, PRN
  6. VALSARTAN. [Suspect]
     Active Substance: VALSARTAN
     Indication: PRODUCT USED FOR UNKNOWN INDICATION
     Dosage: UNK
  7. GEMFIBROZIL. [Suspect]
     Active Substance: GEMFIBROZIL
     Indication: PRODUCT USED FOR UNKNOWN INDICATION
     Dosage: UNK
  8. METAMIZOLE [Suspect]
     Active Substance: METAMIZOLE
     Indication: INFLUENZA LIKE ILLNESS
     Dosage: 575 MG, Q8H
     Route: 048

REACTIONS (22)
  - Acute kidney injury [Recovered/Resolved]
  - Acquired aminoaciduria [Recovered/Resolved]
  - Renal tubular dysfunction [Recovered/Resolved]
  - Hyperuricosuria [Recovered/Resolved]
  - Hypouricaemia [Recovered/Resolved]
  - Blood pressure inadequately controlled [Recovered/Resolved]
  - Anion gap increased [Recovered/Resolved]
  - Tubulointerstitial nephritis [Recovered/Resolved]
  - Asthenia [Recovered/Resolved]
  - Mucosal dryness [Recovered/Resolved]
  - Isosthenuria [Recovered/Resolved]
  - Abdominal pain [Recovered/Resolved]
  - Urine output increased [Recovered/Resolved]
  - Fanconi syndrome [Recovered/Resolved]
  - Metabolic acidosis [Recovered/Resolved]
  - Glycosuria [Recovered/Resolved]
  - Proteinuria [Recovered/Resolved]
  - Glomerular filtration rate decreased [Recovered/Resolved]
  - Renal tubular necrosis [Recovered/Resolved]
  - Dry skin [Recovered/Resolved]
  - Hyperphosphaturia [Recovered/Resolved]
  - Nausea [Recovered/Resolved]
